FAERS Safety Report 4693239-1 (Version None)
Quarter: 2005Q2

REPORT INFORMATION
  Report Type: 
  Country: None (occurrence: None)
  Receive Date: 20050311
  Receipt Date: 20050311
  Transmission Date: 20051028
  Serious: No
  Sender: FDA-Public Use
  Company Number: None

PATIENT
  Sex: Female
  Weight: 98.4306 kg

DRUGS (1)
  1. WARFARIN SODIUM [Suspect]
     Indication: ANEURYSM
     Dosage: 3 MG PO QD
     Route: 048
     Dates: start: 20040101

REACTIONS (2)
  - FATIGUE [None]
  - RASH [None]
